FAERS Safety Report 7524926-5 (Version None)
Quarter: 2011Q2

REPORT INFORMATION
  Report Type: 
  Country: None (occurrence: None)
  Receive Date: 20110606
  Receipt Date: 20110531
  Transmission Date: 20111010
  Serious: Yes (Death, Other)
  Sender: FDA-Public Use
  Company Number: US-CELGENEUS-163-21880-11060179

PATIENT
  Age: 84 Year
  Sex: Female

DRUGS (19)
  1. DEXAMETHASONE [Concomitant]
     Route: 065
     Dates: start: 20091101, end: 20100601
  2. MORPHINE [Concomitant]
     Route: 065
  3. ALBUTEROL SULFATE AUTOHALER [Concomitant]
     Route: 065
  4. OMEPRAZOLE [Concomitant]
     Route: 065
  5. REVLIMID [Suspect]
     Dosage: 25 MILLIGRAM
     Route: 048
     Dates: start: 20100901, end: 20101101
  6. REVLIMID [Suspect]
     Dosage: 25 MILLIGRAM
     Route: 048
     Dates: start: 20101201, end: 20110111
  7. INDOMETHACIN [Concomitant]
     Route: 065
  8. HALOPERIDOL [Concomitant]
     Route: 065
  9. REVLIMID [Suspect]
     Indication: MULTIPLE MYELOMA
     Dosage: 25 MILLIGRAM
     Route: 048
     Dates: start: 20091101, end: 20101201
  10. OXYCODONE HCL [Concomitant]
     Route: 065
  11. NEUPOGEN [Concomitant]
     Route: 065
  12. DEXAMETHASONE [Concomitant]
     Route: 065
     Dates: start: 20110222
  13. DEXAMETHASONE [Concomitant]
     Route: 065
     Dates: start: 20100901, end: 20101101
  14. DOCUSATE [Concomitant]
     Route: 065
  15. ADVAIR DISKUS 100/50 [Concomitant]
     Route: 065
  16. FUROSEMIDE [Concomitant]
     Route: 065
  17. LORAZEPAM [Concomitant]
     Route: 065
  18. PHENOBARBITAL TAB [Concomitant]
     Route: 065
  19. LIPITOR [Concomitant]
     Route: 065

REACTIONS (2)
  - DEATH [None]
  - PANCYTOPENIA [None]
